FAERS Safety Report 10143095 (Version 1)
Quarter: 2014Q2

REPORT INFORMATION
  Report Type: Spontaneous
  Country: US (occurrence: US)
  Receive Date: 20140430
  Receipt Date: 20140430
  Transmission Date: 20141212
  Serious: No
  Sender: FDA-Public Use
  Company Number: US-MYLANLABS-2014S1002412

PATIENT
  Age: 84 Year
  Sex: Male
  Weight: 96.16 kg

DRUGS (1)
  1. ACYCLOVIR OINTMENT USP [Suspect]
     Indication: HERPES ZOSTER
     Route: 061
     Dates: start: 20140128, end: 20140129

REACTIONS (3)
  - Application site pain [Recovering/Resolving]
  - Eye swelling [Recovering/Resolving]
  - Eye pain [Recovering/Resolving]
